FAERS Safety Report 18532199 (Version 1)
Quarter: 2020Q4

REPORT INFORMATION
  Report Type: Spontaneous
  Country: GR (occurrence: GR)
  Receive Date: 20201123
  Receipt Date: 20201123
  Transmission Date: 20210114
  Serious: Yes (Hospitalization, Other)
  Sender: FDA-Public Use
  Company Number: GR-AMGEN-GRCSP2020186704

PATIENT
  Sex: Female

DRUGS (5)
  1. DEXATON [DEXAMETHASONE SODIUM PHOSPHATE] [Concomitant]
     Dosage: UNK
  2. MEGAPLATIN [Concomitant]
     Dosage: UNK
  3. TRONDAMET [Concomitant]
     Dosage: UNK
  4. ALIMTA [Concomitant]
     Active Substance: PEMETREXED DISODIUM
     Dosage: UNK
  5. PROLIA [Suspect]
     Active Substance: DENOSUMAB
     Indication: OSTEOPOROSIS POSTMENOPAUSAL
     Dosage: UNK
     Route: 065
     Dates: start: 20200519

REACTIONS (2)
  - Pulmonary mass [Not Recovered/Not Resolved]
  - Respiratory tract infection [Not Recovered/Not Resolved]

NARRATIVE: CASE EVENT DATE: 2020
